FAERS Safety Report 17194276 (Version 1)
Quarter: 2019Q4

REPORT INFORMATION
  Report Type: Report from Study
  Country: US (occurrence: US)
  Receive Date: 20191224
  Receipt Date: 20191224
  Transmission Date: 20200122
  Serious: No
  Sender: FDA-Public Use
  Company Number: US-BEH-2019110582

PATIENT
  Age: 33 Year
  Sex: Female
  Weight: 102 kg

DRUGS (2)
  1. HAEGARDA [Suspect]
     Active Substance: HUMAN C1-ESTERASE INHIBITOR
     Indication: HEREDITARY ANGIOEDEMA
     Dosage: 6200 UNK, BIW (EVERY 3 OR 4 DAYS)
     Route: 058
     Dates: start: 20190611
  2. HAEGARDA [Suspect]
     Active Substance: HUMAN C1-ESTERASE INHIBITOR
     Indication: PROPHYLAXIS

REACTIONS (2)
  - Therapy cessation [Unknown]
  - No adverse event [Unknown]

NARRATIVE: CASE EVENT DATE: 20191111
